FAERS Safety Report 15600692 (Version 2)
Quarter: 2018Q4

REPORT INFORMATION
  Report Type: Spontaneous
  Country: US (occurrence: US)
  Receive Date: 20181109
  Receipt Date: 20181221
  Transmission Date: 20190205
  Serious: No
  Sender: FDA-Public Use
  Company Number: US-ASTRAZENECA-2018SF42466

PATIENT
  Age: 60 Year
  Sex: Male
  Weight: 79.4 kg

DRUGS (1)
  1. ALVESCO [Suspect]
     Active Substance: CICLESONIDE
     Indication: ASTHMA
     Dosage: TWO TIMES A DAY
     Route: 055

REACTIONS (4)
  - Lower respiratory tract congestion [Unknown]
  - Device malfunction [Unknown]
  - Intentional device misuse [Unknown]
  - Cough [Unknown]
